FAERS Safety Report 20134803 (Version 1)
Quarter: 2021Q4

REPORT INFORMATION
  Report Type: Spontaneous
  Country: IN (occurrence: IN)
  Receive Date: 20211201
  Receipt Date: 20211201
  Transmission Date: 20220303
  Serious: Yes (Other)
  Sender: FDA-Public Use
  Company Number: IN-MLMSERVICE-20211116-3221261-1

PATIENT
  Age: 11 Year
  Sex: Male

DRUGS (1)
  1. METHOTREXATE [Suspect]
     Active Substance: METHOTREXATE
     Indication: B precursor type acute leukaemia
     Dosage: DOSE: 3 GM/M2 AND 5 G/M2

REACTIONS (4)
  - Mucosal inflammation [Unknown]
  - Liver function test abnormal [Recovered/Resolved]
  - Pseudomonas infection [Unknown]
  - Pseudomonal sepsis [Unknown]
